FAERS Safety Report 25112075 (Version 1)
Quarter: 2025Q1

REPORT INFORMATION
  Report Type: Spontaneous
  Country: ES (occurrence: ES)
  Receive Date: 20250324
  Receipt Date: 20250324
  Transmission Date: 20250409
  Serious: Yes (Hospitalization)
  Sender: MYLAN
  Company Number: None

PATIENT
  Age: 65 Year
  Sex: Female

DRUGS (2)
  1. PRASUGREL [Interacting]
     Active Substance: PRASUGREL
     Indication: Cardiovascular event prophylaxis
     Dosage: 10 MILLIGRAM, QD (1 TABLET PER DAY)
     Dates: start: 20240502, end: 20250302
  2. ASPIRIN [Interacting]
     Active Substance: ASPIRIN
     Indication: Cardiovascular event prophylaxis
     Dosage: 100 MILLIGRAM, QD (1 TABLET PER DAY) (30 TABLETS (POLYPROPYLENE - ALUMINUM))
     Dates: start: 20240430

REACTIONS (2)
  - Duodenal ulcer haemorrhage [Recovering/Resolving]
  - Drug interaction [Unknown]

NARRATIVE: CASE EVENT DATE: 20250302
